APPROVED DRUG PRODUCT: DIPHEN
Active Ingredient: DIPHENHYDRAMINE HYDROCHLORIDE
Strength: 12.5MG/5ML
Dosage Form/Route: SYRUP;ORAL
Application: A070118 | Product #001
Applicant: MORTON GROVE PHARMACEUTICALS INC
Approved: Oct 1, 1985 | RLD: No | RS: No | Type: DISCN